FAERS Safety Report 12736245 (Version 1)
Quarter: 2016Q3

REPORT INFORMATION
  Report Type: Spontaneous
  Country: US (occurrence: US)
  Receive Date: 20160913
  Receipt Date: 20160913
  Transmission Date: 20161109
  Serious: No
  Sender: FDA-Public Use
  Company Number: US-ASTRAZENECA-2016SE64941

PATIENT
  Age: 483 Month
  Sex: Female
  Weight: 49.9 kg

DRUGS (11)
  1. SYMBICORT [Suspect]
     Active Substance: BUDESONIDE\FORMOTEROL FUMARATE DIHYDRATE
     Indication: ASTHMA
     Dosage: 160/4.5MCG, 1 PUFF TWICE DAILY
     Route: 055
     Dates: start: 201301
  2. ALBUTEROL INHALER [Concomitant]
     Active Substance: ALBUTEROL
     Indication: ASTHMA
     Dosage: SINCE SEP OR OCT OF 2011, HAS BEEN TAKING ALBUTEROL NEBULIZER AS NEEDED
     Route: 055
     Dates: start: 2011
  3. LEVOTHYROXINE. [Concomitant]
     Active Substance: LEVOTHYROXINE
     Indication: HYPOTHYROIDISM
     Dosage: 125MCG ON MONDAY, WEDNESDAY, FRIDAY, SATURDAY AND SUNDAY, AND 100MCG ON TUESDAY AND THURSDAY
     Route: 048
     Dates: start: 2000
  4. SYMBICORT [Suspect]
     Active Substance: BUDESONIDE\FORMOTEROL FUMARATE DIHYDRATE
     Indication: ASTHMA
     Dosage: 160/4.5MCG, 2 PUFFS TWICE DAILY
     Route: 055
     Dates: start: 201508
  5. SYMBICORT [Suspect]
     Active Substance: BUDESONIDE\FORMOTEROL FUMARATE DIHYDRATE
     Indication: ASTHMA
     Dosage: 80/4.5MCG, 2 PUFFS TWICE DAILY
     Route: 055
     Dates: start: 201405
  6. ALBUTEROL INHALER [Concomitant]
     Active Substance: ALBUTEROL
     Indication: ASTHMA
     Dosage: 2.5MG/3ML, AS NEEDED
     Dates: start: 201009
  7. FERREX [Concomitant]
     Indication: MINERAL SUPPLEMENTATION
     Dosage: 300MCG AND 450MCG, EVERY OTHER DAY
     Dates: start: 201402
  8. SYMBICORT [Suspect]
     Active Substance: BUDESONIDE\FORMOTEROL FUMARATE DIHYDRATE
     Indication: ASTHMA
     Dosage: 160/4.5MCG, 2 PUFFS TWICE A DAY IN THE MORNING AND THE EVENING
     Route: 055
     Dates: start: 2005
  9. SYMBICORT [Suspect]
     Active Substance: BUDESONIDE\FORMOTEROL FUMARATE DIHYDRATE
     Indication: ASTHMA
     Dosage: 160/4.5MCG, 2 PUFFS TWICE A DAY IN THE MORNING AND EVENING
     Route: 055
     Dates: start: 201004
  10. LIOTHYRONINE [Concomitant]
     Active Substance: LIOTHYRONINE
     Indication: HYPOTHYROIDISM
     Dosage: 5MCG, TWICE A DAY, BEGINNING IN THE SPRING OF 2014
     Route: 048
  11. ALBUTEROL INHALER [Concomitant]
     Active Substance: ALBUTEROL
     Indication: ASTHMA
     Dosage: SINCE 2003 OR 2004 HAS BEEN TAKING ALBUTEROL INHALER AS NEEDED
     Route: 055

REACTIONS (7)
  - Off label use [Unknown]
  - Intentional product misuse [Recovered/Resolved]
  - Alopecia [Not Recovered/Not Resolved]
  - Renal mass [Not Recovered/Not Resolved]
  - Asthma [Recovered/Resolved]
  - Cough [Recovered/Resolved]
  - Dysphonia [Not Recovered/Not Resolved]

NARRATIVE: CASE EVENT DATE: 201007
